FAERS Safety Report 4558075-5 (Version None)
Quarter: 2005Q1

REPORT INFORMATION
  Report Type: 
  Country: None (occurrence: None)
  Receive Date: 20050121
  Receipt Date: 20040909
  Transmission Date: 20050727
  Serious: No
  Sender: FDA-Public Use
  Company Number: US-BRISTOL-MYERS SQUIBB COMPANY-12697538

PATIENT
  Age: 45 Year
  Sex: Female

DRUGS (5)
  1. SERZONE [Suspect]
     Dates: start: 20040831
  2. BENADRYL [Suspect]
     Indication: NASOPHARYNGITIS
     Dosage: ONE ULTRATAB
     Dates: start: 20040831
  3. KLONOPIN [Suspect]
     Dates: start: 20040831
  4. FLONASE [Suspect]
     Dates: start: 20040831
  5. VISICOL [Suspect]
     Dosage: 20 TABLETS
     Dates: start: 20040831

REACTIONS (2)
  - HYPOAESTHESIA [None]
  - LOCAL SWELLING [None]
